FAERS Safety Report 16551755 (Version 1)
Quarter: 2019Q3

REPORT INFORMATION
  Report Type: Spontaneous
  Country: US (occurrence: US)
  Receive Date: 20190710
  Receipt Date: 20190710
  Transmission Date: 20191004
  Serious: Yes (Hospitalization, Other)
  Sender: FDA-Public Use
  Company Number: US-PURDUE PHARMA-USA-2019-0147650

PATIENT
  Sex: Male

DRUGS (1)
  1. OXYCONTIN [Suspect]
     Active Substance: OXYCODONE HYDROCHLORIDE
     Indication: PRODUCT USED FOR UNKNOWN INDICATION
     Dosage: UNK
     Route: 048
     Dates: start: 2016

REACTIONS (7)
  - Malaise [Unknown]
  - Sensory disturbance [Unknown]
  - Mood swings [Unknown]
  - Drug dependence [Unknown]
  - Intentional self-injury [Unknown]
  - Suicidal ideation [Not Recovered/Not Resolved]
  - Major depression [Not Recovered/Not Resolved]

NARRATIVE: CASE EVENT DATE: 2016
